FAERS Safety Report 7434870-X (Version None)
Quarter: 2011Q2

REPORT INFORMATION
  Report Type: 
  Country: None (occurrence: None)
  Receive Date: 20110415
  Receipt Date: 20110408
  Transmission Date: 20111010
  Serious: Yes (Other)
  Sender: FDA-Public Use
  Company Number: 2011SP014097

PATIENT
  Age: 27 Year
  Sex: Female
  Weight: 88 kg

DRUGS (2)
  1. IMPLANON [Suspect]
     Indication: CONTRACEPTION
     Dosage: 1 DF ; 1 DF;SC
     Route: 058
     Dates: start: 20090701, end: 20090701
  2. IMPLANON [Suspect]
     Indication: CONTRACEPTION
     Dosage: 1 DF ; 1 DF;SC
     Route: 058
     Dates: start: 20070716, end: 20090716

REACTIONS (4)
  - MONOPLEGIA [None]
  - AMENORRHOEA [None]
  - WRONG TECHNIQUE IN DRUG USAGE PROCESS [None]
  - WEIGHT DECREASED [None]
